FAERS Safety Report 4881505-6 (Version None)
Quarter: 2005Q4

REPORT INFORMATION
  Report Type: 
  Country: None (occurrence: None)
  Receive Date: 20051201
  Receipt Date: 20050729
  Transmission Date: 20060501
  Serious: No
  Sender: FDA-Public Use
  Company Number: 2005PV000664

PATIENT
  Age: 62 Year
  Sex: Male
  Weight: 98.4306 kg

DRUGS (7)
  1. BYETTA [Suspect]
     Indication: DIABETES MELLITUS NON-INSULIN-DEPENDENT
     Dosage: 10 MCG;BID;SC   5 MCG;SC
     Route: 058
     Dates: end: 20050101
  2. BYETTA [Suspect]
     Indication: DIABETES MELLITUS NON-INSULIN-DEPENDENT
     Dosage: 10 MCG;BID;SC   5 MCG;SC
     Route: 058
     Dates: start: 20050724
  3. GLUCOTROL [Concomitant]
  4. GLUCOPHAGE [Concomitant]
  5. COREG [Concomitant]
  6. ALTACE [Concomitant]
  7. ALLOPURINOL [Concomitant]

REACTIONS (3)
  - INJECTION SITE BRUISING [None]
  - INJECTION SITE ERYTHEMA [None]
  - INJECTION SITE VESICLES [None]
